FAERS Safety Report 20223503 (Version 3)
Quarter: 2022Q2

REPORT INFORMATION
  Report Type: Spontaneous
  Country: PT (occurrence: PT)
  Receive Date: 20211223
  Receipt Date: 20220512
  Transmission Date: 20220721
  Serious: Yes (Other)
  Sender: FDA-Public Use
  Company Number: PT-KYOWAKIRIN-2021BKK021368

PATIENT

DRUGS (8)
  1. POTELIGEO [Suspect]
     Active Substance: MOGAMULIZUMAB-KPKC
     Indication: Cutaneous T-cell lymphoma
     Dosage: 1 MG/KG-90 MG, SUBSEQUENT CYCLES D1, D15 OF EACH 28-DAY CYCLE
     Route: 042
     Dates: start: 20210405
  2. POTELIGEO [Suspect]
     Active Substance: MOGAMULIZUMAB-KPKC
     Dosage: 1 MG/KG- 90MG, 1ST CYCLE D1,D8,D15 AND D22
     Route: 042
     Dates: end: 20211021
  3. SULFAMETHOXAZOLE\TRIMETHOPRIM [Concomitant]
     Active Substance: SULFAMETHOXAZOLE\TRIMETHOPRIM
     Indication: Product used for unknown indication
     Dosage: 800 MG AND 160 MG EVERY 12 HOURS, 3 DAYS A WEEK
     Route: 065
     Dates: end: 20211118
  4. CETIRIZINE [Concomitant]
     Active Substance: CETIRIZINE HYDROCHLORIDE
     Indication: Product used for unknown indication
     Dosage: 10 MG, ONCE DAILY
     Route: 065
  5. VALGANCICLOVIR [Concomitant]
     Active Substance: VALGANCICLOVIR
     Indication: Product used for unknown indication
     Dosage: 900 MG, ONCE A DAY
     Route: 065
     Dates: end: 20211118
  6. VALSARTAN AND HYDROCHLOROTHIAZIDE [Concomitant]
     Active Substance: HYDROCHLOROTHIAZIDE\VALSARTAN
     Indication: Product used for unknown indication
     Dosage: 80 MG AND 12.5 MG ONCE DAILY
     Route: 065
  7. SIMVASTATIN [Concomitant]
     Active Substance: SIMVASTATIN
     Indication: Product used for unknown indication
     Dosage: 20 MG, ONCE DAILY
     Route: 065
  8. OMEPRAZOLE [Concomitant]
     Active Substance: OMEPRAZOLE
     Indication: Product used for unknown indication
     Dosage: 20 MG, ONCE DAILY
     Route: 065

REACTIONS (5)
  - Autoimmune haemolytic anaemia [Recovering/Resolving]
  - Pancytopenia [Unknown]
  - Neutropenia [Unknown]
  - Thrombocytopenia [Recovered/Resolved]
  - Leukopenia [Recovered/Resolved]

NARRATIVE: CASE EVENT DATE: 20210101
